FAERS Safety Report 5100593-5 (Version None)
Quarter: 2006Q3

REPORT INFORMATION
  Report Type: 
  Country: None (occurrence: None)
  Receive Date: 20060907
  Receipt Date: 20060907
  Transmission Date: 20061208
  Serious: Yes (Other)
  Sender: FDA-Public Use
  Company Number: None

PATIENT
  Age: 22 Year
  Sex: Female

DRUGS (5)
  1. COPPERTONE SPORT LOTION (SPF 50) [Suspect]
     Indication: PROPHYLAXIS AGAINST SOLAR RADIATION
     Dosage: TOP
     Route: 061
     Dates: start: 20060711, end: 20060711
  2. LEVOTHYROXIN [Concomitant]
  3. COMBIVENT [Concomitant]
  4. PULMICORT [Concomitant]
  5. ALBUTEROL [Concomitant]

REACTIONS (11)
  - APPLICATION SITE VESICLES [None]
  - BURNS FIRST DEGREE [None]
  - BURNS SECOND DEGREE [None]
  - BURNS THIRD DEGREE [None]
  - CAUSTIC INJURY [None]
  - CRYING [None]
  - DISCOMFORT [None]
  - ERYTHEMA [None]
  - PURULENCE [None]
  - SKIN EXFOLIATION [None]
  - SKIN INFECTION [None]
